FAERS Safety Report 8382730 (Version 2)
Quarter: 2012Q4

REPORT INFORMATION
  Report Type: 
  Country: BR (occurrence: BR)
  Receive Date: 20120201
  Receipt Date: 20121025
  Transmission Date: 20130627
  Serious: Yes (Death, Hospitalization, Other)
  Sender: FDA-Public Use
  Company Number: PHHY2012BR007537

PATIENT
  Sex: Male

DRUGS (5)
  1. EXELON PATCH [Suspect]
     Dosage: 4.6 mg, UNK
     Route: 062
  2. EXELON PATCH [Suspect]
     Dosage: 7.5 cm, UNK
     Route: 062
  3. EXELON PATCH [Suspect]
     Dosage: 13.3 mg, UNK
     Route: 062
  4. EXELON PATCH [Suspect]
     Dosage: 9.5 mg/ 24hrs
     Route: 062
  5. MEMANTINE HYDROCHLORIDE [Concomitant]
     Indication: DEMENTIA ALZHEIMER^S TYPE
     Dosage: 0.5 DF, daily

REACTIONS (12)
  - Death [Fatal]
  - Femur fracture [Recovered/Resolved]
  - Urinary tract infection [Unknown]
  - Pneumonia aspiration [Unknown]
  - Pneumonia [Unknown]
  - Bronchopneumonia [Unknown]
  - Sepsis [Unknown]
  - Dysstasia [Unknown]
  - Confusional state [Not Recovered/Not Resolved]
  - Wrong technique in drug usage process [Unknown]
  - Condition aggravated [Not Recovered/Not Resolved]
  - Agitation [Unknown]
